FAERS Safety Report 10783863 (Version 3)
Quarter: 2015Q2

REPORT INFORMATION
  Report Type: Spontaneous
  Country: AT (occurrence: AT)
  Receive Date: 20150210
  Receipt Date: 20150409
  Transmission Date: 20150821
  Serious: Yes (Other)
  Sender: FDA-Public Use
  Company Number: AT-009507513-1502AUT001311

PATIENT
  Age: 30 Year
  Sex: Female
  Weight: 64 kg

DRUGS (1)
  1. IMPLANON [Suspect]
     Active Substance: ETONOGESTREL
     Indication: CONTRACEPTION
     Dosage: UNK,LEFT ARM
     Route: 059
     Dates: start: 2004

REACTIONS (3)
  - Device dislocation [Not Recovered/Not Resolved]
  - Drug dose omission [Unknown]
  - Device difficult to use [Not Recovered/Not Resolved]
